FAERS Safety Report 4323620-1 (Version None)
Quarter: 2004Q1

REPORT INFORMATION
  Report Type: 
  Country: None (occurrence: None)
  Receive Date: 20040326
  Receipt Date: 20040317
  Transmission Date: 20041129
  Serious: Yes (Death)
  Sender: FDA-Public Use
  Company Number: FR-BRISTOL-MYERS SQUIBB COMPANY-12536140

PATIENT
  Sex: Female

DRUGS (5)
  1. TAXOL [Suspect]
     Indication: OVARIAN NEOPLASM
     Route: 042
     Dates: start: 20031203, end: 20031203
  2. POLARAMINE [Concomitant]
     Indication: PREMEDICATION
     Route: 042
     Dates: start: 20031203, end: 20031203
  3. SOLU-MEDROL [Concomitant]
     Indication: PREMEDICATION
     Route: 042
     Dates: start: 20031203, end: 20031203
  4. ZANTAC [Concomitant]
     Indication: PREMEDICATION
     Route: 042
     Dates: start: 20031203, end: 20031203
  5. ZOPHREN [Concomitant]
     Indication: PREMEDICATION
     Route: 042
     Dates: start: 20031203, end: 20031203

REACTIONS (2)
  - CARDIOGENIC SHOCK [None]
  - CONFUSIONAL STATE [None]
